FAERS Safety Report 10725671 (Version 1)
Quarter: 2015Q1

REPORT INFORMATION
  Report Type: Report from Study
  Country: US (occurrence: US)
  Receive Date: 20150121
  Receipt Date: 20150121
  Transmission Date: 20150721
  Serious: Yes (Hospitalization)
  Sender: FDA-Public Use
  Company Number: US-BIOGENIDEC-2015BI005691

PATIENT
  Age: 61 Year
  Sex: Female
  Weight: 101 kg

DRUGS (18)
  1. PROAIR HFA [Concomitant]
     Active Substance: ALBUTEROL SULFATE
  2. ASMANEX [Concomitant]
     Active Substance: MOMETASONE FUROATE
     Dates: start: 20120702
  3. DILITIAZEM HCI ER [Concomitant]
     Route: 048
  4. FLECAINIDE ACETATE. [Concomitant]
     Active Substance: FLECAINIDE ACETATE
     Indication: HEART RATE IRREGULAR
     Route: 048
  5. CLINDAMYCIN HCI [Concomitant]
     Route: 048
     Dates: start: 20141112
  6. VOLTAREN [Concomitant]
     Active Substance: DICLOFENAC SODIUM
  7. AMOXICILLIN POTASSIUM CLAVULANATE [Concomitant]
     Route: 048
  8. ASPIRIN. [Concomitant]
     Active Substance: ASPIRIN
     Route: 048
  9. CEPHALEXIN. [Concomitant]
     Active Substance: CEPHALEXIN
     Route: 048
     Dates: start: 20130424
  10. CRESTOR [Concomitant]
     Active Substance: ROSUVASTATIN CALCIUM
     Route: 048
     Dates: start: 20110415
  11. CALCIUM D [Concomitant]
     Active Substance: CALCIUM\VITAMIN D
  12. CENTRUM SILVER [Concomitant]
     Active Substance: VITAMINS
  13. HYDROCODONE ACETAMINOPHEN 5-325 [Concomitant]
     Route: 048
  14. IBUPROFEN. [Concomitant]
     Active Substance: IBUPROFEN
     Route: 048
  15. AVONEX [Suspect]
     Active Substance: INTERFERON BETA-1A
     Indication: MULTIPLE SCLEROSIS
     Route: 030
     Dates: start: 1992
  16. FISH OIL [Concomitant]
     Active Substance: FISH OIL
     Route: 048
  17. LISINOPRIL. [Concomitant]
     Active Substance: LISINOPRIL
     Route: 048
  18. VITAMIN D [Concomitant]
     Active Substance: CHOLECALCIFEROL
     Route: 048

REACTIONS (3)
  - Cellulitis [Unknown]
  - Injection site infection [Unknown]
  - Haematoma [Unknown]
